FAERS Safety Report 24900543 (Version 1)
Quarter: 2025Q1

REPORT INFORMATION
  Report Type: Report from Study
  Country: US (occurrence: US)
  Receive Date: 20250129
  Receipt Date: 20250129
  Transmission Date: 20250408
  Serious: Yes (Other)
  Sender: JOHNSON AND JOHNSON
  Company Number: US-JNJFOC-20250151807

PATIENT

DRUGS (1)
  1. TALQUETAMAB [Suspect]
     Active Substance: TALQUETAMAB
     Indication: Plasma cell myeloma refractory

REACTIONS (10)
  - Cytokine release syndrome [Unknown]
  - Immune effector cell-associated neurotoxicity syndrome [Unknown]
  - Thrombocytopenia [Unknown]
  - Anaemia [Unknown]
  - Dysgeusia [Unknown]
  - Dry mouth [Unknown]
  - Weight decreased [Unknown]
  - Nail disorder [Unknown]
  - Skin disorder [Unknown]
  - Respiratory tract infection [Unknown]
